FAERS Safety Report 24567963 (Version 1)
Quarter: 2024Q4

REPORT INFORMATION
  Report Type: Report from Study
  Country: US (occurrence: US)
  Receive Date: 20241031
  Receipt Date: 20241031
  Transmission Date: 20250115
  Serious: Yes (Other)
  Sender: STALLERGENES
  Company Number: US-STALCOR-2024-AER-02394

PATIENT
  Age: 15 Year
  Sex: Male
  Weight: 63.5 kg

DRUGS (4)
  1. PALFORZIA [Suspect]
     Active Substance: PEANUT
     Indication: Food allergy
     Dosage: REACTIVE DOSE WITH PUDDING FOR FIRST EPISODE OF ANAPHYLACTIC REACTION
     Route: 048
     Dates: start: 20220117
  2. PALFORZIA [Suspect]
     Active Substance: PEANUT
     Dosage: IDE WITH PUDDING
     Route: 048
     Dates: start: 2021
  3. PALFORZIA [Suspect]
     Active Substance: PEANUT
     Dosage: LAST TOLERATED DOSE WITH PUDDING, 300MG
     Route: 048
     Dates: start: 20220116
  4. PALFORZIA [Suspect]
     Active Substance: PEANUT
     Dosage: REACTIVE DOSE WITH PUDDING FOR SECOND EPISODE OF ANAPHYLACTIC REACTION
     Route: 048
     Dates: start: 20220217, end: 20220217

REACTIONS (10)
  - Anaphylactic reaction [Recovered/Resolved]
  - Face oedema [Recovered/Resolved]
  - Erythema [Recovered/Resolved]
  - Cough [Recovered/Resolved]
  - Wheezing [Recovered/Resolved]
  - Facial pain [Recovered/Resolved]
  - Erythema [Recovered/Resolved]
  - Nasal congestion [Recovered/Resolved]
  - Lacrimation increased [Recovered/Resolved]
  - Rhinorrhoea [Recovered/Resolved]

NARRATIVE: CASE EVENT DATE: 20220117
